FAERS Safety Report 4398703-0 (Version None)
Quarter: 2004Q3

REPORT INFORMATION
  Report Type: 
  Country: None (occurrence: None)
  Receive Date: 20040712
  Receipt Date: 20040705
  Transmission Date: 20050211
  Serious: Yes (Hospitalization)
  Sender: FDA-Public Use
  Company Number: FR-SHR-04-020988

PATIENT
  Age: 44 Year
  Sex: Female
  Weight: 45 kg

DRUGS (5)
  1. BETAFERON (INTERFERON BETA - 1B) INJECTION, 250UG [Suspect]
     Indication: MULTIPLE SCLEROSIS
     Dosage: 8 MIU/ML, EVERY 2D, SUBCUTANEOUS
     Route: 058
     Dates: start: 20000320
  2. TEGRETOL [Concomitant]
  3. NIFEDIPINE [Concomitant]
  4. EUPRESSYL (URAPIDIL) CAPSULE [Concomitant]
  5. DITROPAN (OXYBUTYNIN HYDROCHLORIDE) COATED TABLET [Concomitant]

REACTIONS (1)
  - THROMBOPHLEBITIS [None]
